FAERS Safety Report 17068781 (Version 2)
Quarter: 2019Q4

REPORT INFORMATION
  Report Type: Spontaneous
  Country: US (occurrence: US)
  Receive Date: 20191124
  Receipt Date: 20191213
  Transmission Date: 20200122
  Serious: No
  Sender: FDA-Public Use
  Company Number: US-BIOGEN-2019BI00799822

PATIENT
  Sex: Female
  Weight: 77.11 kg

DRUGS (9)
  1. LORAZEPAM. [Concomitant]
     Active Substance: LORAZEPAM
     Route: 065
  2. CYMBALTA [Concomitant]
     Active Substance: DULOXETINE HYDROCHLORIDE
     Dosage: ORAL DELAYED RELEASE CAPSULE, 60 MG= 1 CAP, ORAL, DAILY
     Route: 048
  3. TIZANIDINE. [Concomitant]
     Active Substance: TIZANIDINE
     Route: 065
  4. NEXPLANON [Concomitant]
     Active Substance: ETONOGESTREL
     Dosage: 68 MG SUBCUTANEOUS IMPLANT, 68 MG, SUBDERMAL, ONCE
     Route: 058
  5. NORCO [Concomitant]
     Active Substance: ACETAMINOPHEN\HYDROCODONE BITARTRATE
     Dosage: 7.5 MG-325 MG ORAL TABLET, 1 TABS, ORAL, TID, PRN
     Route: 048
  6. CEFTRIAXONE. [Concomitant]
     Active Substance: CEFTRIAXONE
     Route: 065
  7. BACTRIM [Concomitant]
     Active Substance: SULFAMETHOXAZOLE\TRIMETHOPRIM
     Route: 065
  8. CEPHALEXIN. [Concomitant]
     Active Substance: CEPHALEXIN
     Dosage: 500 MG= 1 CAP, ORAL, QID
     Route: 048
  9. TYSABRI [Suspect]
     Active Substance: NATALIZUMAB
     Indication: MULTIPLE SCLEROSIS
     Route: 042
     Dates: start: 20181002

REACTIONS (14)
  - Tachycardia [Unknown]
  - Pyrexia [Recovered/Resolved]
  - Cellulitis [Unknown]
  - Erythema [Unknown]
  - Sinusitis [Unknown]
  - Vitamin B12 deficiency [Unknown]
  - Lymphocyte count increased [Unknown]
  - White blood cell count increased [Unknown]
  - Monocyte count increased [Unknown]
  - Eosinophil count increased [Unknown]
  - Granulocyte count increased [Unknown]
  - Contusion [Unknown]
  - Eosinophil percentage increased [Unknown]
  - Pain [Unknown]
